FAERS Safety Report 9282787 (Version 1)
Quarter: 2013Q2

REPORT INFORMATION
  Report Type: Spontaneous
  Country: US (occurrence: None)
  Receive Date: 20130506
  Receipt Date: 20130506
  Transmission Date: 20140414
  Serious: Yes (Hospitalization, Other)
  Sender: FDA-Public Use
  Company Number: AUR-APL-2013-03612

PATIENT
  Age: 7 Decade
  Sex: Female

DRUGS (2)
  1. VENLAFAXINE [Suspect]
     Indication: DEPRESSION
  2. QUETIAPINE [Suspect]
     Indication: DEPRESSION
     Dosage: 1 D

REACTIONS (4)
  - Psychomotor hyperactivity [None]
  - Pressure of speech [None]
  - Grandiosity [None]
  - Sedation [None]
